FAERS Safety Report 8516002-X (Version None)
Quarter: 2012Q3

REPORT INFORMATION
  Report Type: 
  Country: None (occurrence: None)
  Receive Date: 20120717
  Receipt Date: 20120628
  Transmission Date: 20120928
  Serious: Yes (Hospitalization)
  Sender: FDA-Public Use
  Company Number: US-009507513-1205USA01213

PATIENT

DRUGS (24)
  1. ZOVIRAX [Concomitant]
     Dates: start: 20120506
  2. CYTARABINE [Suspect]
     Dosage: DAY -6 TIL DAY -3
  3. DIPHENHYDRAMINE HCL [Concomitant]
  4. LOPERAMIDE HCL [Concomitant]
  5. VORINOSTAT [Suspect]
     Indication: NON-HODGKIN'S LYMPHOMA
     Dosage: 200 MG, QD
     Route: 048
     Dates: start: 20120430, end: 20120506
  6. DAPSONE [Concomitant]
     Dates: start: 20120506
  7. COMPAZINE [Concomitant]
     Dates: start: 20120506
  8. MELPHALAN HYDROCHLORIDE [Suspect]
     Dosage: DAY -2
  9. CHOLECALCIFEROL [Concomitant]
  10. VELCADE [Suspect]
     Indication: NON-HODGKIN'S LYMPHOMA
     Dosage: D2 AND D8
     Route: 042
     Dates: start: 20120501
  11. ALLEGRA [Concomitant]
     Dates: start: 20120506
  12. CARMUSTINE [Suspect]
     Dosage: DAY - 7
  13. CITALOPRAM HYDROBROMIDE [Concomitant]
     Dates: start: 20120506
  14. BACTRIM [Concomitant]
     Dates: start: 20120506
  15. POTASSIUM CHLORIDE [Concomitant]
  16. RITUXAN [Suspect]
     Dosage: DAY - 19 AND DAY - 12
  17. VITAMIN D (UNSPECIFIED) [Concomitant]
     Dates: start: 20120506
  18. ETOPOSIDE [Suspect]
     Dosage: DAY -6 TILL DAY -3
  19. POTASSIUM BICARBONATE [Concomitant]
     Dates: start: 20120506
  20. NYSTATIN [Concomitant]
     Dates: start: 20120506
  21. LORAZEPAM [Concomitant]
  22. ZOFRAN [Concomitant]
     Dates: start: 20120506
  23. FOLIC ACID [Concomitant]
     Dates: start: 20120506
  24. VITAMINS (UNSPECIFIED) [Concomitant]
     Dates: start: 20120506

REACTIONS (1)
  - PNEUMONIA [None]
